FAERS Safety Report 5675192-7 (Version None)
Quarter: 2008Q1

REPORT INFORMATION
  Report Type: 
  Country: None (occurrence: None)
  Receive Date: 20080320
  Receipt Date: 20080318
  Transmission Date: 20080703
  Serious: Yes (Hospitalization)
  Sender: FDA-Public Use
  Company Number: US-BAXTER-2008BH002306

PATIENT
  Age: 65 Year
  Sex: Male

DRUGS (2)
  1. HEPARIN SODIUM [Suspect]
     Indication: ARTERIOGRAM CORONARY
     Route: 013
     Dates: start: 20070530, end: 20070530
  2. HEPARIN SODIUM [Suspect]
     Route: 013
     Dates: start: 20070530, end: 20070530

REACTIONS (3)
  - CEREBROVASCULAR ACCIDENT [None]
  - COAGULATION TIME SHORTENED [None]
  - DRUG INEFFECTIVE [None]
